FAERS Safety Report 15506565 (Version 2)
Quarter: 2018Q4

REPORT INFORMATION
  Report Type: Report from Study
  Country: DE (occurrence: DE)
  Receive Date: 20181016
  Receipt Date: 20181023
  Transmission Date: 20190205
  Serious: Yes (Other)
  Sender: FDA-Public Use
  Company Number: DE-PFIZER INC-2018412916

PATIENT

DRUGS (5)
  1. PROCARBAZINE [Suspect]
     Active Substance: PROCARBAZINE
     Dosage: 100 MG FOR 5 DAYS (6 CYCLES REPEATED ON DAY 29)
     Route: 048
  2. MABTHERA [Suspect]
     Active Substance: RITUXIMAB
     Indication: CENTRAL NERVOUS SYSTEM LYMPHOMA
     Dosage: INFUSED IN 90 MIN DAY 6 (ONLY AT THE BEGINNING OF TREATMENT), DAYS 1, 15 AND 29
     Route: 042
  3. LOMUSTINE. [Suspect]
     Active Substance: LOMUSTINE
     Indication: CENTRAL NERVOUS SYSTEM LYMPHOMA
     Dosage: 110 MG/M2  (ON DAY 2)
     Route: 048
  4. METHOTREXATE SODIUM. [Suspect]
     Active Substance: METHOTREXATE SODIUM
     Indication: CENTRAL NERVOUS SYSTEM LYMPHOMA
     Dosage: 3 G, (OVER 4 H ON DAYS 2, 16 AND 30)
     Route: 042
  5. PROCARBAZINE [Suspect]
     Active Substance: PROCARBAZINE
     Indication: CENTRAL NERVOUS SYSTEM LYMPHOMA
     Dosage: 60 MG/M2, (ON DAYS 2-11)
     Route: 048

REACTIONS (7)
  - Infection [Unknown]
  - Renal impairment [Unknown]
  - Anaemia [Unknown]
  - Mucosal inflammation [Unknown]
  - Leukopenia [Unknown]
  - Thrombocytopenia [Unknown]
  - Transaminases abnormal [Unknown]
